FAERS Safety Report 14360423 (Version 1)
Quarter: 2018Q1

REPORT INFORMATION
  Report Type: Spontaneous
  Country: FR (occurrence: FR)
  Receive Date: 20180106
  Receipt Date: 20180106
  Transmission Date: 20180509
  Serious: Yes (Hospitalization)
  Sender: FDA-Public Use
  Company Number: FR-SUN PHARMACEUTICAL INDUSTRIES LTD-2018R1-159231

PATIENT
  Age: 43 Year
  Sex: Female
  Weight: 109 kg

DRUGS (15)
  1. LEVOTHYROX 100 MICROGRAMMES, COMPRIM? S?CABLE [Concomitant]
  2. ARNICA MONTANA POUR PREPARATIONS HOMEOPATHIQUES [Suspect]
     Active Substance: ARNICA MONTANA\HERBALS\HOMEOPATHICS
     Indication: POSTOPERATIVE ANALGESIA
     Dosage: UNK
     Route: 048
     Dates: start: 20170609, end: 20170612
  3. CHLORHEXIDINE (DIGLUCONATE DE) [Concomitant]
  4. CHLORMADINONE (ACETATE DE) [Concomitant]
  5. MIDAZOLAM [Concomitant]
     Active Substance: MIDAZOLAM HYDROCHLORIDE
  6. PROPOFOL. [Concomitant]
     Active Substance: PROPOFOL
  7. ECONAZOLE [Suspect]
     Active Substance: ECONAZOLE
     Indication: INTERTRIGO
     Dosage: UNK
     Route: 061
     Dates: start: 201706, end: 201706
  8. DEXAMETHASONE. [Concomitant]
     Active Substance: DEXAMETHASONE
  9. PERFALGAN [Concomitant]
     Active Substance: ACETAMINOPHEN
  10. BETADINE [Concomitant]
     Active Substance: POVIDONE-IODINE
  11. IBUPROFENE [Suspect]
     Active Substance: IBUPROFEN
     Indication: POSTOPERATIVE ANALGESIA
     Dosage: UNK
     Route: 048
     Dates: start: 20170613, end: 20170614
  12. SUFENTANIL [Concomitant]
     Active Substance: SUFENTANIL
  13. DAFALGAN CODEINE [Suspect]
     Active Substance: ACETAMINOPHEN\CODEINE PHOSPHATE
     Indication: POSTOPERATIVE ANALGESIA
     Dosage: UNK
     Route: 048
     Dates: start: 20170609, end: 20170612
  14. SEVOFLURANE BAXTER [Concomitant]
     Active Substance: SEVOFLURANE
  15. KETAMINE [Concomitant]
     Active Substance: KETAMINE

REACTIONS (5)
  - Rash pustular [Recovered/Resolved]
  - Pruritus [Recovered/Resolved]
  - Dermatitis bullous [Recovered/Resolved]
  - Rash maculo-papular [Recovered/Resolved]
  - Eosinophilia [Recovered/Resolved]

NARRATIVE: CASE EVENT DATE: 20170617
